FAERS Safety Report 7197560-7 (Version None)
Quarter: 2010Q4

REPORT INFORMATION
  Report Type: 
  Country: None (occurrence: None)
  Receive Date: 20101227
  Receipt Date: 20101220
  Transmission Date: 20110411
  Serious: Yes (Death, Hospitalization)
  Sender: FDA-Public Use
  Company Number: NL-SANOFI-AVENTIS-2010SA072311

PATIENT
  Age: 50 Year
  Sex: Female
  Weight: 54 kg

DRUGS (15)
  1. DOCETAXEL [Suspect]
     Indication: HEAD AND NECK CANCER
     Route: 041
     Dates: start: 20090826, end: 20090826
  2. DOCETAXEL [Suspect]
     Route: 041
     Dates: start: 20091028, end: 20091028
  3. ERBITUX [Suspect]
     Indication: HEAD AND NECK CANCER
     Route: 042
     Dates: start: 20090826, end: 20090826
  4. ERBITUX [Suspect]
     Route: 042
     Dates: start: 20091229, end: 20091229
  5. FLUOROURACIL [Suspect]
     Indication: HEAD AND NECK CANCER
     Route: 042
     Dates: start: 20090826, end: 20090830
  6. FLUOROURACIL [Suspect]
     Route: 042
     Dates: start: 20091028, end: 20091101
  7. CISPLATIN [Suspect]
     Indication: HEAD AND NECK CANCER
     Route: 042
     Dates: start: 20090826, end: 20090826
  8. CISPLATIN [Suspect]
     Route: 042
     Dates: start: 20091028, end: 20091028
  9. CARBOPLATIN [Suspect]
     Indication: HEAD AND NECK CANCER
     Route: 042
     Dates: start: 20091201, end: 20091201
  10. CARBOPLATIN [Suspect]
     Route: 042
     Dates: start: 20100112, end: 20100112
  11. THERAPEUTIC RADIOPHARMACEUTICALS [Suspect]
     Indication: HEAD AND NECK CANCER
     Dates: start: 20091130, end: 20100115
  12. FENTANYL [Concomitant]
     Indication: PAIN
     Dates: start: 20091221, end: 20101024
  13. FENTANYL [Concomitant]
     Dates: start: 20101016, end: 20101018
  14. FENTANYL [Concomitant]
     Dates: start: 20101018, end: 20101024
  15. PARACETAMOL [Concomitant]
     Indication: PAIN
     Route: 048
     Dates: start: 20100922, end: 20101024

REACTIONS (1)
  - PHARYNGEAL HAEMORRHAGE [None]
